FAERS Safety Report 8435146-4 (Version None)
Quarter: 2012Q2

REPORT INFORMATION
  Report Type: 
  Country: None (occurrence: None)
  Receive Date: 20120614
  Receipt Date: 20120606
  Transmission Date: 20120825
  Serious: Yes (Hospitalization)
  Sender: FDA-Public Use
  Company Number: US-BAYER-2012-057396

PATIENT
  Age: 25 Year
  Sex: Female
  Weight: 73.923 kg

DRUGS (2)
  1. AVELOX [Concomitant]
     Dosage: UNK MG, UNK
     Dates: start: 20040113
  2. YASMIN [Suspect]
     Dosage: UNK UNK, QD

REACTIONS (1)
  - INTRACRANIAL VENOUS SINUS THROMBOSIS [None]
